FAERS Safety Report 6049562-1 (Version None)
Quarter: 2009Q1

REPORT INFORMATION
  Report Type: 
  Country: None (occurrence: None)
  Receive Date: 20090123
  Receipt Date: 20090114
  Transmission Date: 20090719
  Serious: Yes (Death, Hospitalization)
  Sender: FDA-Public Use
  Company Number: BR-PFIZER INC-2008157755

PATIENT

DRUGS (5)
  1. DETRUSITOL LA [Suspect]
     Indication: HYPERTONIC BLADDER
     Dosage: UNK
     Route: 048
     Dates: start: 20080601
  2. ALLOPURINOL [Concomitant]
     Route: 065
     Dates: start: 20060101, end: 20081128
  3. AMLODIPINE BESILATE [Concomitant]
     Route: 065
     Dates: start: 20040101, end: 20081128
  4. CARVEDILOL [Concomitant]
     Route: 065
     Dates: start: 20040101, end: 20081128
  5. DIGOXIN [Concomitant]
     Route: 065
     Dates: start: 20040101, end: 20081128

REACTIONS (3)
  - DEATH [None]
  - HOSPITALISATION [None]
  - SWELLING [None]
